FAERS Safety Report 7028174-7 (Version None)
Quarter: 2010Q3

REPORT INFORMATION
  Report Type: 
  Country: None (occurrence: None)
  Receive Date: 20100930
  Receipt Date: 20100921
  Transmission Date: 20110219
  Serious: Yes (Hospitalization, Other)
  Sender: FDA-Public Use
  Company Number: 2010US003898

PATIENT
  Age: 45 Year
  Sex: Female

DRUGS (12)
  1. PROGRAF [Suspect]
     Indication: RENAL TRANSPLANT
     Dosage: 5 MG, BID ; 2 MG, UID/QD
     Dates: end: 20070101
  2. PROGRAF [Suspect]
     Indication: RENAL TRANSPLANT
     Dosage: 5 MG, BID ; 2 MG, UID/QD
     Dates: start: 20060101
  3. PROGRAF [Suspect]
     Indication: RENAL TRANSPLANT
     Dosage: 5 MG, BID ; 2 MG, UID/QD
     Dates: start: 20070101
  4. GLUCOCORTICOIDS() [Suspect]
     Indication: SYSTEMIC LUPUS ERYTHEMATOSUS
  5. CYCLOPHOSPHAMIDE [Suspect]
     Indication: SYSTEMIC LUPUS ERYTHEMATOSUS
     Dosage: IV NOS
     Route: 042
  6. THYMOGLOBULIN [Suspect]
     Indication: RENAL TRANSPLANT
     Dates: start: 20060101
  7. PREDNISONE [Suspect]
     Indication: RENAL TRANSPLANT
     Dosage: 5 MG, UID/QD, ORAL ; 15 MG, UID/QD, ORAL ; 10 MG, UID/QD, ORAL ; 5 MG, UID/QD, ORAL
     Dates: start: 20070101, end: 20070101
  8. PREDNISONE [Suspect]
     Indication: RENAL TRANSPLANT
     Dosage: 5 MG, UID/QD, ORAL ; 15 MG, UID/QD, ORAL ; 10 MG, UID/QD, ORAL ; 5 MG, UID/QD, ORAL
     Dates: start: 20070101, end: 20070101
  9. PREDNISONE [Suspect]
     Indication: RENAL TRANSPLANT
     Dosage: 5 MG, UID/QD, ORAL ; 15 MG, UID/QD, ORAL ; 10 MG, UID/QD, ORAL ; 5 MG, UID/QD, ORAL
     Dates: start: 20060101
  10. PREDNISONE [Suspect]
     Indication: RENAL TRANSPLANT
     Dosage: 5 MG, UID/QD, ORAL ; 15 MG, UID/QD, ORAL ; 10 MG, UID/QD, ORAL ; 5 MG, UID/QD, ORAL
     Dates: start: 20070101
  11. MYCOPHENOLIC ACID [Suspect]
     Indication: RENAL TRANSPLANT
     Dosage: 720 MG, BID
     Dates: end: 20070801
  12. MYCOPHENOLIC ACID [Suspect]
     Indication: RENAL TRANSPLANT
     Dosage: 720 MG, BID
     Dates: start: 20060101

REACTIONS (11)
  - ADENOVIRUS INFECTION [None]
  - AZOTAEMIA [None]
  - BONE MARROW FAILURE [None]
  - DIABETES MELLITUS [None]
  - HYDRONEPHROSIS [None]
  - HYDROURETER [None]
  - NEUTROPENIA [None]
  - OBSTRUCTIVE UROPATHY [None]
  - OVARIAN GERM CELL TERATOMA BENIGN [None]
  - RENAL TUBULAR NECROSIS [None]
  - TUBULOINTERSTITIAL NEPHRITIS [None]
